FAERS Safety Report 14648295 (Version 1)
Quarter: 2018Q1

REPORT INFORMATION
  Report Type: Spontaneous
  Country: DE (occurrence: DE)
  Receive Date: 20180316
  Receipt Date: 20180316
  Transmission Date: 20180509
  Serious: Yes (Congenital Anomaly, Other)
  Sender: FDA-Public Use
  Company Number: DE-PFIZER INC-2018106274

PATIENT
  Age: 1 Day
  Sex: Female
  Weight: 2.36 kg

DRUGS (1)
  1. TREVILOR RETARD [Suspect]
     Active Substance: VENLAFAXINE HYDROCHLORIDE
     Indication: DEPRESSION
     Dosage: 150 MG, 1X/DAY
     Route: 064
     Dates: start: 20161019, end: 20170610

REACTIONS (9)
  - Infantile haemangioma [Unknown]
  - Neonatal respiratory distress syndrome [Recovered/Resolved]
  - Anomalous pulmonary venous connection [Unknown]
  - Hypotonia neonatal [Recovered/Resolved]
  - Selective eating disorder [Recovered/Resolved]
  - Pulmonary artery stenosis [Unknown]
  - Maternal exposure during pregnancy [Not Recovered/Not Resolved]
  - Temperature regulation disorder [Recovered/Resolved]
  - Atrial septal defect [Not Recovered/Not Resolved]

NARRATIVE: CASE EVENT DATE: 20170610
